FAERS Safety Report 5796056-4 (Version None)
Quarter: 2008Q3

REPORT INFORMATION
  Report Type: 
  Country: None (occurrence: None)
  Receive Date: 20080701
  Receipt Date: 20080616
  Transmission Date: 20090109
  Serious: Yes (Other)
  Sender: FDA-Public Use
  Company Number: FR-JNJFOC-20080606719

PATIENT
  Age: 73 Year
  Sex: Male

DRUGS (8)
  1. IXPRIM [Suspect]
     Indication: BACK PAIN
     Route: 048
  2. SINTROM [Interacting]
     Indication: DRUG USE FOR UNKNOWN INDICATION
     Dosage: ALTERNATES 1/4 TABLET AND 1/2 TABLET
     Route: 048
  3. AMIODARONE HCL [Interacting]
     Indication: DRUG USE FOR UNKNOWN INDICATION
     Route: 065
  4. METFORMIN [Concomitant]
  5. PRAVASTATIN [Concomitant]
  6. BISOPROLOL FUMARATE [Concomitant]
  7. ALLOPURINOL [Concomitant]
  8. ODRIK [Concomitant]

REACTIONS (4)
  - DRUG INTERACTION [None]
  - HAEMORRHAGE [None]
  - INTERNATIONAL NORMALISED RATIO FLUCTUATION [None]
  - PLATELET COUNT DECREASED [None]
